FAERS Safety Report 4846257-4 (Version None)
Quarter: 2005Q4

REPORT INFORMATION
  Report Type: 
  Country: None (occurrence: None)
  Receive Date: 20051130
  Receipt Date: 20051123
  Transmission Date: 20060501
  Serious: Yes (Congenital Anomaly)
  Sender: FDA-Public Use
  Company Number: 8-95032-002B

PATIENT
  Sex: Male
  Weight: 3.99 kg

DRUGS (18)
  1. EFFEXOR [Suspect]
     Indication: DEPRESSION
     Dosage: 37.5 MG 3X PER 1 DAY
     Dates: start: 19940301, end: 19940601
  2. DEXAMETHASONE [Suspect]
  3. ERYTHROMYCIN [Suspect]
  4. HYDROCODONE BITARTRATE [Suspect]
  5. IBUPROFEN [Suspect]
  6. LORAZEPAM [Suspect]
  7. RETIN-A [Suspect]
     Dosage: TOPICAL
     Route: 061
  8. ESTAZOLAM [Concomitant]
  9. AMITRIPTYLINE HCL [Concomitant]
  10. SUMATRIPTAN SUCCINATE [Concomitant]
  11. METHADONE HCL [Concomitant]
  12. CARISOPRODOL [Concomitant]
  13. HYOSCYAMINE (HYOSCYAMINE) [Concomitant]
  14. IV GAMMA GLOBULIN (IV GAMMA GLOBULIN) [Concomitant]
  15. CEFADROXIL (CEFADROXIL) [Concomitant]
  16. AZITHROMYCIN [Concomitant]
  17. BECLOMETHASONE (BECLOMETHASONE) [Concomitant]
  18. IPRATROPIUM BROMIDE [Concomitant]

REACTIONS (4)
  - DRUG EXPOSURE DURING PREGNANCY [None]
  - HERNIA CONGENITAL [None]
  - INTESTINAL PERFORATION [None]
  - NEONATAL DISORDER [None]
